FAERS Safety Report 12694229 (Version 4)
Quarter: 2016Q3

REPORT INFORMATION
  Report Type: Spontaneous
  Country: IN (occurrence: IN)
  Receive Date: 20160829
  Receipt Date: 20160926
  Transmission Date: 20161109
  Serious: Yes (Other)
  Sender: FDA-Public Use
  Company Number: IN-PFIZER INC-2016402718

PATIENT
  Age: 12 Year
  Sex: Female

DRUGS (3)
  1. ADRIAMYCIN [Suspect]
     Active Substance: DOXORUBICIN HYDROCHLORIDE
     Indication: OSTEOSARCOMA
     Dosage: 300 MG/M2, CYCLIC (IN 1 CYCLICAL)
  2. CISPLATIN. [Concomitant]
     Active Substance: CISPLATIN
     Indication: OSTEOSARCOMA
     Dosage: UNK, CYCLIC (IN 1 CYCLICAL)
  3. IFOSFAMIDE. [Concomitant]
     Active Substance: IFOSFAMIDE
     Indication: OSTEOSARCOMA
     Dosage: UNK, CYCLIC (IN 1 CYCLICAL)

REACTIONS (7)
  - Thrombocytopenia [Recovered/Resolved]
  - Respiratory distress [Unknown]
  - Seizure [Unknown]
  - Shock [Unknown]
  - Myocarditis [Recovered/Resolved]
  - Cardiotoxicity [Recovered/Resolved]
  - Chikungunya virus infection [Recovered/Resolved]
